FAERS Safety Report 4391717-6 (Version None)
Quarter: 2004Q3

REPORT INFORMATION
  Report Type: 
  Country: None (occurrence: None)
  Receive Date: 20040701
  Receipt Date: 20040617
  Transmission Date: 20050211
  Serious: Yes (Hospitalization)
  Sender: FDA-Public Use
  Company Number: 164037

PATIENT
  Age: 58 Year
  Sex: Female
  Weight: 78.4723 kg

DRUGS (4)
  1. AVONEX [Suspect]
     Indication: MULTIPLE SCLEROSIS
     Dosage: 30 MCG QW IM
     Route: 030
     Dates: start: 19970715, end: 20020101
  2. PROZAC [Concomitant]
  3. GLUCOPHAGE ^UNS^ [Concomitant]
  4. GLYBURIDE [Concomitant]

REACTIONS (10)
  - BLOOD TRIGLYCERIDES INCREASED [None]
  - DOUBLE VESSEL BYPASS GRAFT [None]
  - FALL [None]
  - HEART VALVE REPLACEMENT [None]
  - HEPATIC ENZYME INCREASED [None]
  - INFLUENZA LIKE ILLNESS [None]
  - MULTIPLE SCLEROSIS [None]
  - PULMONARY THROMBOSIS [None]
  - THROMBOSIS [None]
  - TRANSIENT ISCHAEMIC ATTACK [None]
